FAERS Safety Report 8407843-8 (Version None)
Quarter: 2012Q2

REPORT INFORMATION
  Report Type: 
  Country: None (occurrence: None)
  Receive Date: 20120604
  Receipt Date: 20120521
  Transmission Date: 20120825
  Serious: No
  Sender: FDA-Public Use
  Company Number: US-ASTRAZENECA-2012SE32525

PATIENT
  Age: 36 Year
  Sex: Female
  Weight: 46.7 kg

DRUGS (4)
  1. BIRTH CONTROL PILL [Concomitant]
  2. VALACYCLOVIR HYDROCHLORIDE [Concomitant]
  3. PRILOSEC [Suspect]
     Indication: GASTROOESOPHAGEAL REFLUX DISEASE
     Route: 048
     Dates: start: 20120101
  4. NEXIUM [Concomitant]

REACTIONS (4)
  - DRUG EFFECT DECREASED [None]
  - ABDOMINAL PAIN UPPER [None]
  - INTENTIONAL DRUG MISUSE [None]
  - DYSPHONIA [None]
